FAERS Safety Report 25191651 (Version 2)
Quarter: 2025Q2

REPORT INFORMATION
  Report Type: Spontaneous
  Country: DE (occurrence: DE)
  Receive Date: 20250414
  Receipt Date: 20250515
  Transmission Date: 20250717
  Serious: Yes (Death, Life-Threatening, Other)
  Sender: TORRENT PHARMA INC.
  Company Number: None

PATIENT
  Age: 60 Year
  Sex: Male
  Weight: 86 kg

DRUGS (4)
  1. DICLOFENAC [Suspect]
     Active Substance: DICLOFENAC
     Indication: Phlebitis
     Route: 048
     Dates: start: 20030120, end: 20030203
  2. MARCUMAR [Suspect]
     Active Substance: PHENPROCOUMON
     Indication: Venous thrombosis
     Route: 048
  3. DIHYDROCODEINE [Suspect]
     Active Substance: DIHYDROCODEINE
     Indication: Bronchitis
     Route: 048
     Dates: start: 20030131, end: 20030203
  4. DOXYCYCLINE [Concomitant]
     Active Substance: DOXYCYCLINE
     Indication: Bronchitis
     Route: 065
     Dates: start: 20030131, end: 20030203

REACTIONS (1)
  - Pulmonary embolism [Fatal]

NARRATIVE: CASE EVENT DATE: 20030203
